FAERS Safety Report 9794132 (Version 1)
Quarter: 2014Q1

REPORT INFORMATION
  Report Type: Spontaneous
  Country: US (occurrence: US)
  Receive Date: 20140102
  Receipt Date: 20140102
  Transmission Date: 20141002
  Serious: No
  Sender: FDA-Public Use
  Company Number: US-AMGEN-USASP2013089270

PATIENT
  Age: 74 Year
  Sex: Female

DRUGS (1)
  1. ENBREL [Suspect]
     Indication: RHEUMATOID ARTHRITIS
     Dosage: 25 MG, TWICE A WEEK
     Route: 065
     Dates: start: 20000223

REACTIONS (5)
  - Hyperhidrosis [Not Recovered/Not Resolved]
  - Nervousness [Not Recovered/Not Resolved]
  - Body temperature decreased [Recovered/Resolved]
  - Cystitis [Recovered/Resolved]
  - Alopecia [Not Recovered/Not Resolved]
